FAERS Safety Report 12669752 (Version 1)
Quarter: 2016Q3

REPORT INFORMATION
  Report Type: Report from Study
  Country: GB (occurrence: GB)
  Receive Date: 20160819
  Receipt Date: 20160819
  Transmission Date: 20161109
  Serious: Yes (Hospitalization)
  Sender: FDA-Public Use
  Company Number: GB-ABBVIE-16K-167-1702055-00

PATIENT
  Age: 70 Year
  Sex: Female

DRUGS (1)
  1. HUMIRA [Suspect]
     Active Substance: ADALIMUMAB
     Indication: RHEUMATOID ARTHRITIS
     Route: 058
     Dates: start: 20130515

REACTIONS (3)
  - Chest pain [Unknown]
  - Troponin increased [Recovering/Resolving]
  - Arteriospasm coronary [Unknown]

NARRATIVE: CASE EVENT DATE: 20151026
